FAERS Safety Report 14974831 (Version 1)
Quarter: 2018Q2

REPORT INFORMATION
  Report Type: Spontaneous
  Country: US (occurrence: US)
  Receive Date: 20180605
  Receipt Date: 20180605
  Transmission Date: 20180711
  Serious: No
  Sender: FDA-Public Use
  Company Number: US-ASTRAZENECA-2018SE29755

PATIENT
  Sex: Male

DRUGS (1)
  1. BYDUREON [Suspect]
     Active Substance: EXENATIDE
     Indication: DIABETES MELLITUS
     Route: 065

REACTIONS (6)
  - Fatigue [Unknown]
  - Drug dose omission [Unknown]
  - Intentional product use issue [Unknown]
  - Product prescribing issue [Unknown]
  - Hepatic cirrhosis [Unknown]
  - Injection site mass [Unknown]
